FAERS Safety Report 7859656-3 (Version None)
Quarter: 2011Q4

REPORT INFORMATION
  Report Type: 
  Country: None (occurrence: None)
  Receive Date: 20111026
  Receipt Date: 20111026
  Transmission Date: 20120403
  Serious: Yes (Hospitalization)
  Sender: FDA-Public Use
  Company Number: None

PATIENT
  Age: 60 Year
  Sex: Male
  Weight: 70.2 kg

DRUGS (2)
  1. LISINOPRIL AND HYDROCHLOROTHIAZIDE [Suspect]
     Indication: HYPERTENSION
     Dosage: 1 TAB EVERY DAY PO
     Route: 048
     Dates: start: 20110422, end: 20110713
  2. ETODOLAC [Suspect]
     Indication: PAIN
     Dosage: PO
     Route: 048
     Dates: start: 20110624, end: 20110713

REACTIONS (1)
  - RENAL FAILURE ACUTE [None]
